FAERS Safety Report 5288036-2 (Version None)
Quarter: 2007Q2

REPORT INFORMATION
  Report Type: 
  Country: None (occurrence: None)
  Receive Date: 20070405
  Receipt Date: 20070327
  Transmission Date: 20071010
  Serious: Yes (Other)
  Sender: FDA-Public Use
  Company Number: HQWYE904127MAR07

PATIENT
  Age: 8 Month
  Sex: Male

DRUGS (5)
  1. CORDARONE [Suspect]
     Indication: NODAL ARRHYTHMIA
     Route: 042
     Dates: start: 20070223, end: 20070226
  2. TEICOPLANIN [Concomitant]
     Indication: SEPSIS
     Route: 042
     Dates: start: 20070223, end: 20070228
  3. RANITIDINE [Concomitant]
     Indication: GASTRIC DISORDER
     Route: 042
     Dates: start: 20070221
  4. ACETYLSALICYLIC ACID SRT [Concomitant]
     Indication: SURGERY
     Route: 048
     Dates: start: 20070223
  5. CIPROFLOXACIN [Concomitant]
     Indication: SEPSIS
     Route: 042
     Dates: start: 20070223, end: 20070228

REACTIONS (3)
  - ALANINE AMINOTRANSFERASE INCREASED [None]
  - INTERNATIONAL NORMALISED RATIO INCREASED [None]
  - THYROID FUNCTION TEST ABNORMAL [None]
